FAERS Safety Report 10028960 (Version 2)
Quarter: 2014Q1

REPORT INFORMATION
  Report Type: Report from Study
  Country: CN (occurrence: CN)
  Receive Date: 20140321
  Receipt Date: 20140321
  Transmission Date: 20141002
  Serious: Yes (Hospitalization)
  Sender: FDA-Public Use
  Company Number: CN-BRISTOL-MYERS SQUIBB COMPANY-19890847

PATIENT
  Age: 62 Year
  Sex: Female
  Weight: 66 kg

DRUGS (2)
  1. SAXAGLIPTIN [Suspect]
     Indication: TYPE 2 DIABETES MELLITUS
     Dosage: TABLET
     Route: 048
     Dates: start: 20130730, end: 20131203
  2. METFORMIN HCL [Suspect]
     Route: 048
     Dates: start: 2009

REACTIONS (1)
  - Cerebral haemorrhage [Recovered/Resolved]
